FAERS Safety Report 25591967 (Version 4)
Quarter: 2025Q4

REPORT INFORMATION
  Report Type: Report from Study
  Country: CO (occurrence: CO)
  Receive Date: 20250722
  Receipt Date: 20251217
  Transmission Date: 20260117
  Serious: Yes (Other)
  Sender: TAKEDA
  Company Number: CO-TAKEDA-2024TUS111584

PATIENT
  Age: 73 Year
  Sex: Male
  Weight: 86 kg

DRUGS (1)
  1. VEDOLIZUMAB [Suspect]
     Active Substance: VEDOLIZUMAB
     Indication: Colitis ulcerative
     Dosage: 300 MILLIGRAM

REACTIONS (19)
  - Large intestinal ulcer [Unknown]
  - Product availability issue [Unknown]
  - Product dose omission issue [Unknown]
  - Rosacea [Unknown]
  - Dyspnoea [Unknown]
  - Dizziness [Unknown]
  - Gastrointestinal inflammation [Unknown]
  - Gastrointestinal pain [Unknown]
  - Frequent bowel movements [Unknown]
  - Inappropriate schedule of product administration [Unknown]
  - Poor venous access [Unknown]
  - Pain [Unknown]
  - Large intestine polyp [Unknown]
  - Skin lesion [Unknown]
  - Skin irritation [Unknown]
  - Malaise [Unknown]
  - Erythema [Unknown]
  - Pruritus [Unknown]
  - Influenza [Unknown]

NARRATIVE: CASE EVENT DATE: 20241030
